FAERS Safety Report 9329671 (Version 2)
Quarter: 2014Q2

REPORT INFORMATION
  Report Type: Spontaneous
  Country: US (occurrence: US)
  Receive Date: 20130604
  Receipt Date: 20140524
  Transmission Date: 20141212
  Serious: No
  Sender: FDA-Public Use
  Company Number: US-SANOFI-AVENTIS-2013SA032663

PATIENT
  Age: 49 Year
  Sex: Female
  Weight: 70.53 kg

DRUGS (10)
  1. LANTUS [Suspect]
     Indication: TYPE 1 DIABETES MELLITUS
     Dosage: DOSE:100 UNIT(S)
     Route: 051
     Dates: start: 2005, end: 20110419
  2. LEVOTHYROXINE [Concomitant]
     Indication: THYROID NEOPLASM
     Dates: start: 1981
  3. LEVOTHYROXINE [Concomitant]
     Indication: THYROID NEOPLASM
  4. LEVOTHYROXINE [Concomitant]
     Indication: THYROID NEOPLASM
  5. LEVOTHYROXINE [Concomitant]
     Indication: THYROID NEOPLASM
     Dates: end: 20130130
  6. NORVASC [Concomitant]
     Indication: HYPERTENSION
     Dates: end: 20130130
  7. BENAZEPRIL [Concomitant]
     Indication: HYPERTENSION
     Dates: end: 20130130
  8. INSULIN [Concomitant]
     Indication: DIABETES MELLITUS
     Dosage: DOSE:100 UNIT(S)
     Dates: start: 199512, end: 20130130
  9. NOVOLIN [Concomitant]
     Indication: BLOOD GLUCOSE
     Dosage: DOSE:100 UNIT(S)
     Dates: start: 199512, end: 20130130
  10. ANTIBIOTICS [Concomitant]

REACTIONS (5)
  - Vision blurred [Unknown]
  - Drug ineffective [Unknown]
  - Weight increased [Not Recovered/Not Resolved]
  - Blood glucose increased [Recovered/Resolved]
  - Drug administration error [Unknown]
